FAERS Safety Report 8023090-6 (Version None)
Quarter: 2012Q1

REPORT INFORMATION
  Report Type: 
  Country: None (occurrence: None)
  Receive Date: 20120104
  Receipt Date: 20111230
  Transmission Date: 20120608
  Serious: Yes (Hospitalization, Other)
  Sender: FDA-Public Use
  Company Number: PHEH2011US012861

PATIENT
  Sex: Male

DRUGS (1)
  1. AFINITOR [Suspect]
     Indication: MALIGNANT URINARY TRACT NEOPLASM
     Dosage: 5 MG, DAILY
     Route: 048
     Dates: start: 20111104, end: 20111206

REACTIONS (1)
  - BLISTER [None]
